FAERS Safety Report 9342560 (Version 2)
Quarter: 2013Q2

REPORT INFORMATION
  Report Type: Spontaneous
  Country: US (occurrence: US)
  Receive Date: 20130611
  Receipt Date: 20130613
  Transmission Date: 20140414
  Serious: No
  Sender: FDA-Public Use
  Company Number: US-009507513-1305USA016739

PATIENT
  Sex: Female

DRUGS (4)
  1. CLARITIN LIQUIGELS [Suspect]
     Indication: SEASONAL ALLERGY
     Dosage: 10 MG, QD
     Route: 048
     Dates: start: 20130406
  2. CLARITIN LIQUIGELS [Suspect]
     Indication: EYE PRURITUS
  3. CLARITIN LIQUIGELS [Suspect]
     Indication: NASAL DISCOMFORT
  4. CLARITIN LIQUIGELS [Suspect]
     Indication: THROAT IRRITATION

REACTIONS (1)
  - Drug ineffective [Unknown]
